FAERS Safety Report 5694622-8 (Version None)
Quarter: 2008Q2

REPORT INFORMATION
  Report Type: 
  Country: None (occurrence: None)
  Receive Date: 20080404
  Receipt Date: 20080401
  Transmission Date: 20081010
  Serious: Yes (Other)
  Sender: FDA-Public Use
  Company Number: A0711874A

PATIENT
  Age: 43 Year
  Sex: Female

DRUGS (1)
  1. ALLI [Suspect]
     Indication: WEIGHT CONTROL

REACTIONS (7)
  - ABNORMAL FAECES [None]
  - CHANGE OF BOWEL HABIT [None]
  - FLATULENCE [None]
  - GASTROINTESTINAL DISORDER [None]
  - HAEMORRHOIDS [None]
  - RECTAL DISCHARGE [None]
  - RECTAL HAEMORRHAGE [None]
